FAERS Safety Report 9186366 (Version 1)
Quarter: 2013Q1

REPORT INFORMATION
  Report Type: Spontaneous
  Country: IT (occurrence: IT)
  Receive Date: 20130325
  Receipt Date: 20130325
  Transmission Date: 20140127
  Serious: Yes (Hospitalization)
  Sender: FDA-Public Use
  Company Number: IT-BAYER-2013-033733

PATIENT
  Age: 40 Year
  Sex: Female

DRUGS (3)
  1. PARACETAMOL [Suspect]
     Dosage: 1 G, PRN
     Route: 048
     Dates: start: 20130304, end: 20130308
  2. AMOXICILLINE + CLAVULANIC ACID [Suspect]
     Dosage: DAILY DOSE 2 G
     Route: 048
     Dates: start: 20130304, end: 20130308
  3. PARACODINA [Suspect]
     Dosage: DAILY DOSE 60 GTT
     Route: 048
     Dates: start: 20130304, end: 20130308

REACTIONS (1)
  - Urticaria papular [Not Recovered/Not Resolved]
